FAERS Safety Report 20825572 (Version 3)
Quarter: 2022Q2

REPORT INFORMATION
  Report Type: Spontaneous
  Country: US (occurrence: US)
  Receive Date: 20220513
  Receipt Date: 20220624
  Transmission Date: 20220721
  Serious: Yes (Other)
  Sender: FDA-Public Use
  Company Number: US-IGSA-BIG0018353

PATIENT
  Sex: Female
  Weight: 67 kg

DRUGS (21)
  1. PROLASTIN-C LIQUID [Suspect]
     Active Substance: .ALPHA.1-PROTEINASE INHIBITOR HUMAN
     Indication: Alpha-1 antitrypsin deficiency
     Dosage: 4020 MILLIGRAM, Q.WK.
     Route: 042
     Dates: start: 20220331
  2. PREDNISONE [Concomitant]
     Active Substance: PREDNISONE
  3. TRELEGY ELLIPTA [Concomitant]
     Active Substance: FLUTICASONE FUROATE\UMECLIDINIUM BROMIDE\VILANTEROL TRIFENATATE
  4. BUDESONIDE [Concomitant]
     Active Substance: BUDESONIDE
  5. L-LYSINE HCL [Concomitant]
  6. ASCORBIC ACID [Concomitant]
     Active Substance: ASCORBIC ACID
  7. MELATONIN [Concomitant]
     Active Substance: MELATONIN
  8. BENADRYL ALLERGY + COLD [Concomitant]
  9. MAGNESIUM CITRATE [Concomitant]
     Active Substance: MAGNESIUM CITRATE
  10. ZINC GLUCONATE [Concomitant]
     Active Substance: ZINC GLUCONATE
  11. ASPIRIN [Concomitant]
     Active Substance: ASPIRIN
  12. ERGOCALCIFEROL [Concomitant]
     Active Substance: ERGOCALCIFEROL
  13. VITAMIN E NATURAL [TOCOPHEROL] [Concomitant]
  14. FEXOFENADINE HCL [Concomitant]
     Active Substance: FEXOFENADINE HYDROCHLORIDE
  15. NEXIUM [Concomitant]
     Active Substance: ESOMEPRAZOLE MAGNESIUM
  16. SYNTHROID [Concomitant]
     Active Substance: LEVOTHYROXINE SODIUM
  17. TRAZODONE HCL [Concomitant]
     Active Substance: TRAZODONE HYDROCHLORIDE
  18. ALPRAZOLAM [Concomitant]
     Active Substance: ALPRAZOLAM
  19. ALBUTEROL SULFATE [Concomitant]
     Active Substance: ALBUTEROL SULFATE
  20. FLOVENT HFA [Concomitant]
     Active Substance: FLUTICASONE PROPIONATE
  21. ALBUTEROL\IPRATROPIUM [Concomitant]
     Active Substance: ALBUTEROL\IPRATROPIUM

REACTIONS (10)
  - Fatigue [Recovering/Resolving]
  - Arthralgia [Not Recovered/Not Resolved]
  - Pharyngitis streptococcal [Recovered/Resolved]
  - Suspected transmission of an infectious agent via product [Recovered/Resolved]
  - Abdominal discomfort [Recovered/Resolved]
  - Peripheral swelling [Recovering/Resolving]
  - Wheezing [Recovering/Resolving]
  - Palpitations [Recovering/Resolving]
  - Dyspnoea [Not Recovered/Not Resolved]
  - Contusion [Recovering/Resolving]

NARRATIVE: CASE EVENT DATE: 20220101
